FAERS Safety Report 5292402-9 (Version None)
Quarter: 2007Q2

REPORT INFORMATION
  Report Type: 
  Country: None (occurrence: None)
  Receive Date: 20070410
  Receipt Date: 20070329
  Transmission Date: 20071010
  Serious: Yes (Death)
  Sender: FDA-Public Use
  Company Number: US-PFIZER INC-2005048434

PATIENT
  Sex: Male

DRUGS (3)
  1. NEURONTIN [Suspect]
     Indication: BIPOLAR DISORDER
     Dosage: TEXT:UNKNOWN-FREQ:UNKNOWN
     Route: 065
  2. NEURONTIN [Suspect]
     Indication: DEPRESSION
  3. NEURONTIN [Suspect]
     Indication: BACK PAIN

REACTIONS (2)
  - COMPLETED SUICIDE [None]
  - DRUG INEFFECTIVE [None]
